FAERS Safety Report 7151581-9 (Version None)
Quarter: 2010Q4

REPORT INFORMATION
  Report Type: 
  Country: None (occurrence: None)
  Receive Date: 20101210
  Receipt Date: 20101202
  Transmission Date: 20110411
  Serious: Yes (Other)
  Sender: FDA-Public Use
  Company Number: US-AMGEN-USASP2010001123

PATIENT

DRUGS (2)
  1. ENBREL [Suspect]
     Indication: RHEUMATOID ARTHRITIS
     Dosage: 25 MG, Q2WK
     Dates: start: 20061101, end: 20100923
  2. VACCINE ANTIGRIPAL [Concomitant]
     Dates: start: 20100922, end: 20100922

REACTIONS (7)
  - DRUG INTERACTION [None]
  - HYPOACUSIS [None]
  - MEMORY IMPAIRMENT [None]
  - RASH [None]
  - SINUS DISORDER [None]
  - SLEEP APNOEA SYNDROME [None]
  - URTICARIA [None]
